FAERS Safety Report 20910613 (Version 1)
Quarter: 2022Q2

REPORT INFORMATION
  Report Type: Spontaneous
  Country: US (occurrence: None)
  Receive Date: 20220602
  Receipt Date: 20220602
  Transmission Date: 20220720
  Serious: No
  Sender: FDA-Public Use
  Company Number: None

PATIENT
  Age: 38 Year
  Sex: Female
  Weight: 87.75 kg

DRUGS (8)
  1. BUPRENORPHINE [Suspect]
     Active Substance: BUPRENORPHINE
     Indication: Pain
     Dosage: OTHER QUANTITY : 1 TABLET(S);?FREQUENCY : EVERY 6 HOURS;?
     Route: 060
     Dates: start: 20200130, end: 20201130
  2. SUBUTEX [Suspect]
     Active Substance: BUPRENORPHINE HYDROCHLORIDE
  3. SUBOXONE [Suspect]
     Active Substance: BUPRENORPHINE HYDROCHLORIDE\NALOXONE HYDROCHLORIDE
  4. HYDROCHLOROTHIAZIDE\LISINOPRIL [Concomitant]
     Active Substance: HYDROCHLOROTHIAZIDE\LISINOPRIL
  5. Sundown Magnesium 500mg [Concomitant]
  6. Centrum women gummy multivitamins [Concomitant]
  7. Natures bounty biotin 2500mg [Concomitant]
  8. Nutria champs Collagen multi-type complex [Concomitant]

REACTIONS (5)
  - Dental caries [None]
  - Toothache [None]
  - Tongue disorder [None]
  - Irritability [None]
  - Impatience [None]

NARRATIVE: CASE EVENT DATE: 20201101
